FAERS Safety Report 10754915 (Version 1)
Quarter: 2015Q1

REPORT INFORMATION
  Report Type: Spontaneous
  Country: US (occurrence: US)
  Receive Date: 20150202
  Receipt Date: 20150202
  Transmission Date: 20150721
  Serious: No
  Sender: FDA-Public Use
  Company Number: US-PFIZER INC-2015037362

PATIENT
  Sex: Female

DRUGS (5)
  1. PROCARDIA [Suspect]
     Active Substance: NIFEDIPINE
     Dosage: UNK
  2. CEFTIL (CEFUROXIME AXETIL) [Suspect]
     Active Substance: CEFUROXIME AXETIL
     Dosage: UNK
  3. VALIUM [Suspect]
     Active Substance: DIAZEPAM
     Dosage: UNK
  4. IODINE [Suspect]
     Active Substance: IODINE
  5. CODEINE [Suspect]
     Active Substance: CODEINE
     Dosage: UNK

REACTIONS (1)
  - Drug hypersensitivity [Unknown]
